FAERS Safety Report 5734529-0 (Version None)
Quarter: 2008Q2

REPORT INFORMATION
  Report Type: 
  Country: None (occurrence: None)
  Receive Date: 20080512
  Receipt Date: 20080506
  Transmission Date: 20081010
  Serious: Yes (Hospitalization)
  Sender: FDA-Public Use
  Company Number: PHEH2008US04361

PATIENT
  Sex: Male

DRUGS (8)
  1. PROCRIT [Concomitant]
     Indication: ANAEMIA
  2. ARANESP [Concomitant]
     Indication: NEPHROGENIC ANAEMIA
  3. PROGRAF [Suspect]
     Indication: RENAL TRANSPLANT
     Dates: start: 20071001
  4. BACTRIM [Suspect]
  5. PREDNISONE TAB [Concomitant]
  6. VALCYTE [Concomitant]
  7. FLOMAX [Concomitant]
  8. MYFORTIC [Suspect]
     Indication: RENAL TRANSPLANT
     Dates: start: 20071001

REACTIONS (2)
  - APLASIA PURE RED CELL [None]
  - HAEMOGLOBIN DECREASED [None]
